FAERS Safety Report 20381686 (Version 1)
Quarter: 2022Q1

REPORT INFORMATION
  Report Type: Spontaneous
  Country: US (occurrence: None)
  Receive Date: 20220126
  Receipt Date: 20220126
  Transmission Date: 20220423
  Serious: Yes (Death)
  Sender: FDA-Public Use
  Company Number: None

PATIENT
  Age: 71 Year
  Sex: Female

DRUGS (16)
  1. REPATHA [Suspect]
     Active Substance: EVOLOCUMAB
     Indication: Hyperlipidaemia
     Dates: start: 20200615
  2. AMLODIPINE [Concomitant]
     Active Substance: AMLODIPINE BESYLATE
  3. CITALOPRAM [Concomitant]
  4. LOKELMA [Concomitant]
  5. CYMBALTA [Concomitant]
  6. FUROSEMIDE [Concomitant]
  7. IAUVIA [Concomitant]
  8. LATANPROST [Concomitant]
  9. LYRICA [Concomitant]
  10. NOVOLOG [Concomitant]
  11. TRAMADOL [Concomitant]
     Active Substance: TRAMADOL
  12. ASPIRIN [Concomitant]
  13. TRAZADONE [Concomitant]
  14. ASTELIN NASAL SPRAY [Concomitant]
  15. CARVEDIOLOL [Concomitant]
  16. TOUEJO MAX [Concomitant]

REACTIONS (1)
  - Death [None]
